FAERS Safety Report 5723802-8 (Version None)
Quarter: 2008Q2

REPORT INFORMATION
  Report Type: 
  Country: None (occurrence: None)
  Receive Date: 20080430
  Receipt Date: 20080407
  Transmission Date: 20081010
  Serious: No
  Sender: FDA-Public Use
  Company Number: US-JNJFOC-20080301032

PATIENT
  Sex: Male

DRUGS (3)
  1. INVEGA [Suspect]
     Route: 048
  2. INVEGA [Suspect]
     Indication: BIPOLAR DISORDER
     Route: 048
  3. NIACIN [Suspect]
     Indication: DRUG USE FOR UNKNOWN INDICATION

REACTIONS (6)
  - ARTHRALGIA [None]
  - FEELING HOT [None]
  - HYPOAESTHESIA [None]
  - PAIN IN EXTREMITY [None]
  - PARAESTHESIA [None]
  - RASH MACULAR [None]
